FAERS Safety Report 6751157-9 (Version None)
Quarter: 2010Q2

REPORT INFORMATION
  Report Type: 
  Country: None (occurrence: None)
  Receive Date: 20100602
  Receipt Date: 20100524
  Transmission Date: 20101027
  Serious: Yes (Other)
  Sender: FDA-Public Use
  Company Number: GB-BRISTOL-MYERS SQUIBB COMPANY-15120637

PATIENT

DRUGS (9)
  1. ONGLYZA [Suspect]
  2. ROSIGLITAZONE [Suspect]
  3. METFORMIN HCL [Concomitant]
  4. PLAVIX [Concomitant]
  5. ATENOLOL [Concomitant]
  6. VALSARTAN [Concomitant]
  7. NITROGLYCERIN [Concomitant]
     Dosage: TABLETS.
  8. SIMVASTATIN [Concomitant]
  9. LANSOPRAZOLE [Concomitant]

REACTIONS (3)
  - CHEST PAIN [None]
  - DYSPNOEA [None]
  - HEADACHE [None]
